FAERS Safety Report 23820910 (Version 2)
Quarter: 2024Q2

REPORT INFORMATION
  Report Type: Spontaneous
  Country: US (occurrence: US)
  Receive Date: 20240506
  Receipt Date: 20240601
  Transmission Date: 20240715
  Serious: Yes (Death)
  Sender: FDA-Public Use
  Company Number: US-RADIUS HEALTH INC.-2024US001346

PATIENT
  Age: 89 Year
  Sex: Female

DRUGS (1)
  1. TYMLOS [Suspect]
     Active Substance: ABALOPARATIDE
     Indication: Senile osteoporosis
     Dosage: 80 MICROGRAM, QD
     Route: 058
     Dates: start: 202209

REACTIONS (5)
  - Sepsis [Fatal]
  - COVID-19 [Fatal]
  - Pneumonia [Fatal]
  - Respiratory failure [Fatal]
  - Encephalopathy [Fatal]

NARRATIVE: CASE EVENT DATE: 20240201
